FAERS Safety Report 7789138-9 (Version None)
Quarter: 2011Q3

REPORT INFORMATION
  Report Type: 
  Country: None (occurrence: None)
  Receive Date: 20110928
  Receipt Date: 20110915
  Transmission Date: 20111222
  Serious: Yes (Other)
  Sender: FDA-Public Use
  Company Number: 2010JP004944

PATIENT
  Age: 43 Year
  Sex: Male
  Weight: 59.2 kg

DRUGS (20)
  1. GLUCOBAY [Concomitant]
  2. RABEPRAZOLE SODIUM [Concomitant]
  3. BUFFERIN [Concomitant]
  4. NATEGLINIDE [Concomitant]
  5. CHOLEBINE (COLESTILAN) [Concomitant]
  6. P-MDPA [Concomitant]
  7. AMARYL [Concomitant]
  8. TACROLIMUS [Suspect]
     Indication: LUPUS NEPHRITIS
     Dosage: 3 MG, UNKNOWN/D, ORAL : 1.5 MG, UNKNOWN/D, ORAL : 15MG, UNKNOWN/D, ORAL : 14MG, UNKNOWN/D, ORAL
     Route: 048
     Dates: start: 20081029, end: 20090909
  9. TACROLIMUS [Suspect]
     Indication: LUPUS NEPHRITIS
     Dosage: 3 MG, UNKNOWN/D, ORAL : 1.5 MG, UNKNOWN/D, ORAL : 15MG, UNKNOWN/D, ORAL : 14MG, UNKNOWN/D, ORAL
     Route: 048
     Dates: start: 20100521
  10. TACROLIMUS [Suspect]
     Indication: LUPUS NEPHRITIS
     Dosage: 3 MG, UNKNOWN/D, ORAL : 1.5 MG, UNKNOWN/D, ORAL : 15MG, UNKNOWN/D, ORAL : 14MG, UNKNOWN/D, ORAL
     Route: 048
     Dates: start: 20090107, end: 20100520
  11. TACROLIMUS [Suspect]
     Indication: LUPUS NEPHRITIS
     Dosage: 3 MG, UNKNOWN/D, ORAL : 1.5 MG, UNKNOWN/D, ORAL : 15MG, UNKNOWN/D, ORAL : 14MG, UNKNOWN/D, ORAL
     Route: 048
     Dates: start: 20080820, end: 20081028
  12. LENDORM [Concomitant]
  13. PREDNISOLONE [Suspect]
     Indication: LUPUS NEPHRITIS
     Dosage: 17.5 MG, UNKNOWN/D, ORAL
     Route: 048
     Dates: end: 20090106
  14. KETOPROFEN [Concomitant]
  15. NITROPEN (GLYCERYL TRINITRATE) [Concomitant]
  16. ZETIA [Concomitant]
  17. FAMOTIDINE [Concomitant]
  18. PRAVASTATIN [Concomitant]
  19. GLUFAST (MITIGLINIDE CALCIUM) [Concomitant]
  20. RISPERDAL [Concomitant]

REACTIONS (7)
  - HALLUCINATION [None]
  - CONDITION AGGRAVATED [None]
  - NASOPHARYNGITIS [None]
  - INFLUENZA [None]
  - DIABETES MELLITUS [None]
  - DELUSION [None]
  - UPPER RESPIRATORY TRACT INFLAMMATION [None]
